FAERS Safety Report 20126191 (Version 2)
Quarter: 2022Q2

REPORT INFORMATION
  Report Type: Spontaneous
  Country: BE (occurrence: BE)
  Receive Date: 20211129
  Receipt Date: 20220628
  Transmission Date: 20220720
  Serious: Yes (Other)
  Sender: FDA-Public Use
  Company Number: BE-GSKCCFEMEA-Case-01349370_AE-51563

PATIENT

DRUGS (1)
  1. WELLBUTRIN [Suspect]
     Active Substance: BUPROPION HYDROCHLORIDE
     Indication: Product used for unknown indication
     Dosage: 150 MG

REACTIONS (3)
  - Parasitic gastroenteritis [Unknown]
  - Diarrhoea [Recovering/Resolving]
  - Cryptosporidiosis infection [Unknown]

NARRATIVE: CASE EVENT DATE: 20211101
